FAERS Safety Report 12620423 (Version 1)
Quarter: 2016Q3

REPORT INFORMATION
  Report Type: Spontaneous
  Country: US (occurrence: US)
  Receive Date: 20160803
  Receipt Date: 20160803
  Transmission Date: 20161109
  Serious: No
  Sender: FDA-Public Use
  Company Number: US-ASTRAZENECA-2016SE80459

PATIENT
  Sex: Male

DRUGS (1)
  1. BRILINTA [Suspect]
     Active Substance: TICAGRELOR
     Indication: ACUTE CORONARY SYNDROME
     Route: 048
     Dates: start: 201604

REACTIONS (6)
  - Fear [Unknown]
  - Rash [Unknown]
  - Fatigue [Unknown]
  - Vertigo [Unknown]
  - Dyspnoea [Unknown]
  - Contusion [Unknown]
